FAERS Safety Report 18896975 (Version 1)
Quarter: 2021Q1

REPORT INFORMATION
  Report Type: Spontaneous
  Country: US (occurrence: US)
  Receive Date: 20210212
  Receipt Date: 20210212
  Transmission Date: 20210420
  Serious: No
  Sender: FDA-Public Use
  Company Number: None

PATIENT
  Age: 42 Year
  Sex: Female
  Weight: 120.66 kg

DRUGS (1)
  1. COSENTYX [Suspect]
     Active Substance: SECUKINUMAB
     Indication: PSORIATIC ARTHROPATHY
     Dosage: INJECT 150MG (1 SYRINGE) SUBCUTANEOUSLY EVERY  WEEK  FO R 5 WEEKS AS DIRECTED
     Route: 058
     Dates: start: 201810

REACTIONS (1)
  - Influenza [None]
